FAERS Safety Report 25304740 (Version 1)
Quarter: 2025Q2

REPORT INFORMATION
  Report Type: Spontaneous
  Country: US (occurrence: US)
  Receive Date: 20250513
  Receipt Date: 20250513
  Transmission Date: 20250716
  Serious: Yes (Other)
  Sender: AUROBINDO
  Company Number: US-AUROBINDO-AUR-APL-2023-013781

PATIENT
  Age: 87 Year
  Sex: Male

DRUGS (3)
  1. METOPROLOL [Suspect]
     Active Substance: METOPROLOL
     Indication: Cardiac failure congestive
     Route: 065
  2. LISINOPRIL [Suspect]
     Active Substance: LISINOPRIL
     Indication: Cardiac failure congestive
     Route: 065
  3. BUMETANIDE [Suspect]
     Active Substance: BUMETANIDE
     Indication: Cardiac failure congestive
     Route: 065

REACTIONS (1)
  - Drug ineffective [Unknown]
